FAERS Safety Report 4418400-2 (Version None)
Quarter: 2004Q3

REPORT INFORMATION
  Report Type: 
  Country: None (occurrence: None)
  Receive Date: 20040809
  Receipt Date: 20040414
  Transmission Date: 20050211
  Serious: No
  Sender: FDA-Public Use
  Company Number: US-GLAXOSMITHKLINE-A0507165A

PATIENT
  Sex: Female

DRUGS (3)
  1. PAXIL CR [Suspect]
     Indication: DEPRESSION
     Dosage: 1TAB PER DAY
     Route: 048
     Dates: start: 20040301, end: 20040413
  2. PROMETHAZINE HCL [Concomitant]
  3. COUMADIN [Concomitant]

REACTIONS (3)
  - ANOREXIA [None]
  - DIZZINESS [None]
  - HYPERHIDROSIS [None]
